FAERS Safety Report 9470763 (Version 1)
Quarter: 2013Q3

REPORT INFORMATION
  Report Type: Spontaneous
  Country: US (occurrence: US)
  Receive Date: 20130822
  Receipt Date: 20130822
  Transmission Date: 20140515
  Serious: Yes (Congenital Anomaly, Other)
  Sender: FDA-Public Use
  Company Number: US-ELI_LILLY_AND_COMPANY-US201308005425

PATIENT
  Sex: 0

DRUGS (1)
  1. PROZAC [Suspect]
     Route: 064

REACTIONS (2)
  - Bicuspid aortic valve [Unknown]
  - Foetal exposure during pregnancy [Unknown]
